FAERS Safety Report 8190273-4 (Version None)
Quarter: 2012Q1

REPORT INFORMATION
  Report Type: 
  Country: None (occurrence: None)
  Receive Date: 20120305
  Receipt Date: 20120217
  Transmission Date: 20120608
  Serious: Yes (Other)
  Sender: FDA-Public Use
  Company Number: 1198864

PATIENT
  Age: 86 Year
  Sex: Male
  Weight: 79.09 kg

DRUGS (5)
  1. POTASSIUM CHLORIDE [Suspect]
     Indication: PRODUCT USED FOR UNKNOWN INDICATION
     Dosage: 125 CC/HR, INTRAVENOUS (NOT OTHERWISE SPECIFIED)
     Route: 042
  2. SODIUM CHLORIDE 0.9% [Concomitant]
  3. ZOFRAN [Concomitant]
  4. TYLENOL (CAPLET) [Concomitant]
  5. CIPROFLOXACIN [Suspect]
     Indication: PRODUCT USED FOR UNKNOWN INDICATION
     Dosage: 400 MG, 2 X A DAY
     Route: 041

REACTIONS (3)
  - RASH PAPULAR [None]
  - PRURITUS [None]
  - INFUSION RELATED REACTION [None]
